FAERS Safety Report 4396146-7 (Version None)
Quarter: 2004Q3

REPORT INFORMATION
  Report Type: 
  Country: None (occurrence: None)
  Receive Date: 20040706
  Receipt Date: 20040630
  Transmission Date: 20050211
  Serious: Yes (Death)
  Sender: FDA-Public Use
  Company Number: B0337281A

PATIENT
  Age: 46 Year
  Sex: Female

DRUGS (8)
  1. ALKERAN [Suspect]
     Dosage: 140 MG/M2/ PER DAY/ INTRAVENOUS
     Route: 042
  2. ETOPOSIDE [Suspect]
     Dosage: 200 MG/M2/ TWICE PER DAY/ INTRAVENOUS
     Route: 042
  3. CARMUSTINE [Suspect]
     Dosage: 300 MG/M2/ PER DAY/ INTRAVENOUS
     Route: 042
  4. CYTARABINE [Suspect]
     Dosage: 200 MG/M2/ TWICE PER DAY/ INTRAVENOUS
     Route: 042
  5. FLUDARABINE PHOSPHATE [Concomitant]
  6. RADIOTHERAPY [Concomitant]
  7. CYCLOSPORINE [Concomitant]
  8. ANTIFUNGAL [Concomitant]

REACTIONS (3)
  - FUNGAL INFECTION [None]
  - GRAFT VERSUS HOST DISEASE [None]
  - NEUTROPHIL COUNT DECREASED [None]
